FAERS Safety Report 20882788 (Version 2)
Quarter: 2022Q2

REPORT INFORMATION
  Report Type: Report from Study
  Country: DE (occurrence: DE)
  Receive Date: 20220527
  Receipt Date: 20220627
  Transmission Date: 20220721
  Serious: Yes (Hospitalization, Disabling)
  Sender: FDA-Public Use
  Company Number: DE-BRISTOL-MYERS SQUIBB COMPANY-2022-042683

PATIENT
  Age: 65 Year
  Sex: Female

DRUGS (17)
  1. OPDIVO [Suspect]
     Active Substance: NIVOLUMAB
     Indication: Non-small cell lung cancer
     Route: 042
     Dates: start: 20211118, end: 20220106
  2. YERVOY [Suspect]
     Active Substance: IPILIMUMAB
     Indication: Non-small cell lung cancer
     Route: 042
     Dates: start: 20211118, end: 20220106
  3. CARBOPLATIN [Suspect]
     Active Substance: CARBOPLATIN
     Indication: Non-small cell lung cancer
     Route: 042
     Dates: start: 20211118, end: 20211214
  4. TETRACAINE HYDROCHLORIDE [Concomitant]
     Active Substance: TETRACAINE HYDROCHLORIDE
     Indication: Prophylaxis
     Route: 065
     Dates: start: 20211214
  5. LEVOTHYROXINE SODIUM [Concomitant]
     Active Substance: LEVOTHYROXINE SODIUM
     Dates: start: 20220510
  6. FOSAPREPITANT STADA [Concomitant]
     Indication: Prophylaxis
     Dosage: 1 ST POWDER FOR SOLUTION FOR INFUSION N1 PZN:163498
     Dates: start: 20211118, end: 20211214
  7. AMPHO-MORONAL [Concomitant]
     Active Substance: AMPHOTERICIN B
     Indication: Prophylaxis
     Dosage: AMPHO-MORONAL SUSPENSION, 100 MG/ML 50ML N2
     Dates: start: 20211214, end: 20220112
  8. GLANDOMED [Concomitant]
     Indication: Prophylaxis
     Dates: start: 20211214, end: 20220122
  9. ONDANSETRON [Concomitant]
     Active Substance: ONDANSETRON
     Indication: Prophylaxis
     Dosage: ONDANSETRON ABZ 8MG 30 FILM TABLETS N3
     Dates: start: 20211116, end: 20220106
  10. MCP [Concomitant]
     Active Substance: METOCLOPRAMIDE HYDROCHLORIDE
     Indication: Prophylaxis
     Dosage: MCP - 1 A PHARMA 10MG 100 TABL. N3
     Dates: start: 20211116, end: 20220115
  11. GRANI DENK [Concomitant]
     Indication: Prophylaxis
     Dosage: K 1MG/ML CONCENTRATE FOR SOLUTION FOR INJECTION OR INFUSION 5X1 ML ?N2 PZN:10943671
     Dates: start: 20211118, end: 20211214
  12. PAMIDRONATE DISODIUM [Concomitant]
     Active Substance: PAMIDRONATE DISODIUM
     Indication: Product used for unknown indication
     Dosage: 3MG/ML 60MG CONCENTRATE FOR SOLUTION FOR INFUSION 1 ST N1
     Dates: start: 20211125
  13. SALIVA NATURA [Concomitant]
     Indication: Prophylaxis
     Dosage: MOUTH SPRAY 250ML PUMPSPRAY
     Dates: start: 20211215, end: 20220222
  14. PREDNISOLONE [Concomitant]
     Active Substance: PREDNISOLONE
     Indication: Product used for unknown indication
     Dates: start: 20220411, end: 20220509
  15. PREDNISOLONE [Concomitant]
     Active Substance: PREDNISOLONE
     Dates: start: 20220509
  16. PANTOPRAZOLE [Concomitant]
     Active Substance: PANTOPRAZOLE
     Indication: Prophylaxis
     Dates: start: 20220127, end: 20220331
  17. DEXAMETHASONE [Concomitant]
     Active Substance: DEXAMETHASONE
     Indication: Product used for unknown indication
     Dates: start: 20220114, end: 20220208

REACTIONS (2)
  - Dysphagia [Unknown]
  - Off label use [Unknown]

NARRATIVE: CASE EVENT DATE: 20220401
